FAERS Safety Report 18799253 (Version 1)
Quarter: 2021Q1

REPORT INFORMATION
  Report Type: Spontaneous
  Country: FR (occurrence: FR)
  Receive Date: 20210128
  Receipt Date: 20210128
  Transmission Date: 20210419
  Serious: Yes (Hospitalization, Other)
  Sender: FDA-Public Use
  Company Number: FR-SA-2021SA019823

PATIENT
  Age: 57 Year
  Sex: Female

DRUGS (17)
  1. SERTRALINE [Suspect]
     Active Substance: SERTRALINE HYDROCHLORIDE
     Indication: MENTAL DISORDER
     Dosage: UNK
     Route: 048
     Dates: start: 201308, end: 201310
  2. SULFARLEM [Suspect]
     Active Substance: ANETHOLTRITHION
     Indication: CHRONIC OBSTRUCTIVE PULMONARY DISEASE
     Dosage: 1 DF, TID
     Route: 048
     Dates: end: 20140213
  3. DITROPAN [Suspect]
     Active Substance: OXYBUTYNIN CHLORIDE
     Indication: URINARY INCONTINENCE
     Dosage: 5 MG, QD
     Route: 048
     Dates: end: 20140213
  4. METOJECT [Suspect]
     Active Substance: METHOTREXATE SODIUM
     Indication: RHEUMATOID ARTHRITIS
     Dosage: UNK UNK, QW
     Route: 030
     Dates: end: 201310
  5. ASCORBIC ACID/PARACETAMOL [Suspect]
     Active Substance: ACETAMINOPHEN\ASCORBIC ACID
     Indication: PAIN
     Dosage: 1 G, 1 TABLET, THREE TIMES DAILY
     Route: 048
     Dates: end: 20140213
  6. PANTOPRAZOLE [Suspect]
     Active Substance: PANTOPRAZOLE
     Indication: PROPHYLAXIS AGAINST GASTROINTESTINAL ULCER
     Dosage: 2 GBQ, QD
     Route: 048
     Dates: end: 20140213
  7. SPECIAFOLDINE [Concomitant]
     Active Substance: FOLIC ACID
     Dosage: UNK
  8. METOJECT [Suspect]
     Active Substance: METHOTREXATE SODIUM
     Dosage: UNK UNK, QW
     Route: 030
     Dates: start: 20131215, end: 20140213
  9. SERTRALINE [Suspect]
     Active Substance: SERTRALINE HYDROCHLORIDE
     Dosage: UNK
     Route: 048
     Dates: start: 20131107, end: 20140213
  10. FLUTICASONE PROPIONATE/SALMETEROL XINAFOATE [Suspect]
     Active Substance: FLUTICASONE PROPIONATE\SALMETEROL XINAFOATE
     Indication: CHRONIC OBSTRUCTIVE PULMONARY DISEASE
     Dosage: 1 DF, BID
     Route: 055
     Dates: end: 20140213
  11. AMLODIPINE BESILATE/PERINDOPRIL ARGININE [Suspect]
     Active Substance: AMLODIPINE BESYLATE\PERINDOPRIL ARGININE
     Indication: HYPERTENSION
     Dosage: 5 MG, QD (5MG/5MG, 1 TABLET, ONCE DAILY)
     Route: 048
     Dates: end: 20140210
  12. RISPERIDONE. [Suspect]
     Active Substance: RISPERIDONE
     Indication: MENTAL DISORDER
     Dosage: 1 MG, QD
     Route: 048
     Dates: start: 20131003, end: 20140213
  13. CEFUROXIME AXETIL. [Suspect]
     Active Substance: CEFUROXIME AXETIL
     Indication: PNEUMONIA
     Dosage: UNK
     Route: 048
     Dates: start: 20140210, end: 20140212
  14. TRAMADOL HYDROCHLORIDE. [Suspect]
     Active Substance: TRAMADOL HYDROCHLORIDE
     Indication: PAIN
     Dosage: 2 GBQ, QD
     Route: 048
     Dates: end: 20140213
  15. OLANZAPINE. [Suspect]
     Active Substance: OLANZAPINE
     Indication: HYPERTENSION
     Dosage: UNK
     Route: 048
     Dates: start: 20131107, end: 20140213
  16. ACTONEL [Suspect]
     Active Substance: RISEDRONATE SODIUM
     Indication: OSTEOPOROSIS
     Dosage: 35 MG, QD
     Route: 048
     Dates: end: 20140213
  17. DIFFUNDOX [Suspect]
     Active Substance: TAMSULOSIN HYDROCHLORIDE
     Indication: HYPOKALAEMIA
     Dosage: 1 DF
     Route: 048

REACTIONS (1)
  - Hepatitis [Recovering/Resolving]

NARRATIVE: CASE EVENT DATE: 20140212
